FAERS Safety Report 24009897 (Version 1)
Quarter: 2024Q2

REPORT INFORMATION
  Report Type: Spontaneous
  Country: US (occurrence: US)
  Receive Date: 20240625
  Receipt Date: 20240625
  Transmission Date: 20240716
  Serious: No
  Sender: FDA-Public Use
  Company Number: US-FERRINGPH-2024FE01923

PATIENT
  Age: 76 Year
  Sex: Male

DRUGS (1)
  1. REBYOTA [Suspect]
     Active Substance: DONOR HUMAN STOOL
     Indication: Enterocolitis
     Dosage: 150 ML, ONCE/SINGLE
     Route: 054
     Dates: start: 20240221, end: 20240221

REACTIONS (1)
  - Clostridium test positive [Recovering/Resolving]

NARRATIVE: CASE EVENT DATE: 20240313
